FAERS Safety Report 7300057-4 (Version None)
Quarter: 2011Q1

REPORT INFORMATION
  Report Type: 
  Country: None (occurrence: None)
  Receive Date: 20110217
  Receipt Date: 20110204
  Transmission Date: 20110831
  Serious: Yes (Hospitalization)
  Sender: FDA-Public Use
  Company Number: US-ACTELION-A-US2011-44755

PATIENT

DRUGS (2)
  1. TRACLEER [Suspect]
     Indication: PULMONARY ARTERIAL HYPERTENSION
     Dosage: UNK
     Route: 048
     Dates: start: 20061110
  2. REVATIO [Concomitant]

REACTIONS (5)
  - ULCER [None]
  - DIARRHOEA [None]
  - CHILLS [None]
  - VOMITING [None]
  - PYREXIA [None]
